FAERS Safety Report 13883532 (Version 3)
Quarter: 2018Q2

REPORT INFORMATION
  Report Type: Report from Study
  Country: BR (occurrence: BR)
  Receive Date: 20170819
  Receipt Date: 20180507
  Transmission Date: 20180711
  Serious: Yes (Hospitalization, Other)
  Sender: FDA-Public Use
  Company Number: BR-ROCHE-1980531

PATIENT
  Age: 68 Year
  Sex: Female
  Weight: 51 kg

DRUGS (6)
  1. XOLAIR [Suspect]
     Active Substance: OMALIZUMAB
     Indication: ASTHMA
     Dosage: 2 AMPOULES
     Route: 058
     Dates: start: 2006, end: 201611
  2. FORASEQ [Suspect]
     Active Substance: BUDESONIDE\FORMOTEROL FUMARATE
     Indication: ASTHMA
     Route: 055
  3. XOLAIR [Suspect]
     Active Substance: OMALIZUMAB
     Indication: BRONCHITIS
  4. XOLAIR [Suspect]
     Active Substance: OMALIZUMAB
     Indication: PNEUMONIA
  5. OMEPRAZOLE. [Concomitant]
     Active Substance: OMEPRAZOLE
     Indication: GASTRITIS PROPHYLAXIS
     Dosage: 1 DF, QD (STARTED 50 YEARS AGO)
     Route: 048
  6. METICORTEN [Concomitant]
     Active Substance: PREDNISONE
     Indication: PRODUCT USED FOR UNKNOWN INDICATION
     Route: 065

REACTIONS (11)
  - Malaise [Unknown]
  - Cough [Not Recovered/Not Resolved]
  - Fall [Unknown]
  - Product use in unapproved indication [Unknown]
  - Dysstasia [Unknown]
  - Pain [Recovering/Resolving]
  - Asthma [Not Recovered/Not Resolved]
  - Dyspnoea [Not Recovered/Not Resolved]
  - Pneumonia [Recovered/Resolved]
  - Lung disorder [Unknown]
  - Gait disturbance [Unknown]

NARRATIVE: CASE EVENT DATE: 201611
